FAERS Safety Report 12409354 (Version 1)
Quarter: 2016Q2

REPORT INFORMATION
  Report Type: Spontaneous
  Country: CA (occurrence: CA)
  Receive Date: 20160526
  Receipt Date: 20160526
  Transmission Date: 20160815
  Serious: Yes (Other)
  Sender: FDA-Public Use
  Company Number: ALCN2016CA003714

PATIENT
  Age: 50 Year
  Sex: Male

DRUGS (5)
  1. FOSCARNET [Concomitant]
     Active Substance: FOSCARNET
     Indication: NECROTISING RETINITIS
     Route: 031
  2. PREDNISOLONE ACETATE. [Suspect]
     Active Substance: PREDNISOLONE ACETATE
     Indication: IRITIS
     Dosage: UNK GTT, UNK
     Route: 047
  3. VALACYCLOVIR [Concomitant]
     Active Substance: VALACYCLOVIR HYDROCHLORIDE
     Indication: NECROTISING RETINITIS
     Dosage: 1 G, TID
     Route: 048
  4. HOMATROPINE HBR A-HOMA+ [Suspect]
     Active Substance: HOMATROPINE HYDROBROMIDE
     Indication: NECROTISING RETINITIS
     Dosage: 1 GTT, QID
     Route: 047
  5. PREDNISOLONE ACETATE. [Suspect]
     Active Substance: PREDNISOLONE ACETATE
     Indication: NECROTISING RETINITIS
     Dosage: 1 GTT, QH
     Route: 047

REACTIONS (2)
  - Drug ineffective [Not Recovered/Not Resolved]
  - Cataract [Unknown]
